FAERS Safety Report 8135633 (Version 5)
Quarter: 2012Q4

REPORT INFORMATION
  Report Type: 
  Country: IE (occurrence: IE)
  Receive Date: 20110914
  Receipt Date: 20121010
  Transmission Date: 20130627
  Serious: Yes (Life-Threatening, Hospitalization)
  Sender: FDA-Public Use
  Company Number: IE-US-EMD SERONO, INC.-7081423

PATIENT
  Age: 45 None
  Sex: Female

DRUGS (3)
  1. REBIF [Suspect]
     Indication: RELAPSING-REMITTING MULTIPLE SCLEROSIS
     Route: 058
     Dates: start: 20070903, end: 20110930
  2. SERC [Concomitant]
     Indication: DIZZINESS
     Route: 048
  3. ELTROXIN [Concomitant]
     Indication: PRODUCT USED FOR UNKNOWN INDICATION
     Dosage: 50/75 mg
     Route: 048

REACTIONS (6)
  - Right ventricular failure [Recovering/Resolving]
  - Pericardial effusion [Recovering/Resolving]
  - Cardiomegaly [Unknown]
  - Pulmonary hypertension [Recovering/Resolving]
  - Tachycardia [Unknown]
  - Arthropod bite [Unknown]
